FAERS Safety Report 9178737 (Version 1)
Quarter: 2012Q4

REPORT INFORMATION
  Report Type: 
  Country: DE (occurrence: DE)
  Receive Date: 20121029
  Receipt Date: 20121029
  Transmission Date: 20130627
  Serious: Yes (Other)
  Sender: FDA-Public Use
  Company Number: DE-PFIZER INC-2012267553

PATIENT
  Age: 67 Year
  Sex: Male
  Weight: 95 kg

DRUGS (1)
  1. ATORVASTATIN CALCIUM [Suspect]
     Dosage: 10 mg, UNK
     Route: 048
     Dates: start: 20120325, end: 20120615

REACTIONS (2)
  - Arthralgia [Not Recovered/Not Resolved]
  - Tendon disorder [Unknown]
